FAERS Safety Report 8049109-4 (Version None)
Quarter: 2011Q4

REPORT INFORMATION
  Report Type: 
  Country: None (occurrence: None)
  Receive Date: 20111209
  Receipt Date: 20110912
  Transmission Date: 20120403
  Serious: No
  Sender: FDA-Public Use
  Company Number: 2011SP042931

PATIENT
  Age: 57 Year
  Sex: Female

DRUGS (7)
  1. PEGASYS [Suspect]
     Indication: PRODUCT USED FOR UNKNOWN INDICATION
  2. CALCIUM [Concomitant]
  3. VICTRELIS [Suspect]
     Indication: HEPATITIS C
     Dosage: 4 DF; TID; PO
     Route: 048
     Dates: start: 20110719
  4. LEXAPRO [Concomitant]
  5. ACTONEL [Concomitant]
  6. VITAMIN D [Concomitant]
  7. RIBAVIRIN [Suspect]
     Indication: PRODUCT USED FOR UNKNOWN INDICATION

REACTIONS (2)
  - NAUSEA [None]
  - DYSGEUSIA [None]
